FAERS Safety Report 21509734 (Version 1)
Quarter: 2022Q4

REPORT INFORMATION
  Report Type: Spontaneous
  Country: MY (occurrence: MY)
  Receive Date: 20221026
  Receipt Date: 20221026
  Transmission Date: 20230113
  Serious: Yes (Hospitalization, Other)
  Sender: FDA-Public Use
  Company Number: MY-INSUD PHARMA-2210MY04346

PATIENT

DRUGS (5)
  1. TESTOSTERONE [Suspect]
     Active Substance: TESTOSTERONE
     Indication: Product used for unknown indication
     Dosage: INTRAVENOUS INJECTION
     Route: 042
  2. PRASTERONE [Suspect]
     Active Substance: PRASTERONE
     Indication: Product used for unknown indication
     Dosage: HIGH-DOSE INTRAVENOUS INJECTION
     Route: 042
  3. HYDROCORTISONE [Suspect]
     Active Substance: HYDROCORTISONE
     Indication: Product used for unknown indication
     Dosage: UNK
     Route: 065
  4. VITAMIN C [Concomitant]
     Active Substance: ASCORBIC ACID
     Indication: Product used for unknown indication
     Dosage: HIGH DOSE INTRAVENOUS INJECTION
     Route: 042
  5. MINERALS\VITAMINS [Concomitant]
     Active Substance: MINERALS\VITAMINS
     Dosage: HIGH-DOSE
     Route: 048

REACTIONS (6)
  - Cytomegalovirus chorioretinitis [Recovered/Resolved]
  - Vision blurred [Recovered/Resolved]
  - Vitritis [Recovered/Resolved]
  - Drug abuse [Unknown]
  - CD4 lymphocytes increased [Unknown]
  - CD4 lymphocytes abnormal [Unknown]
